FAERS Safety Report 6096612-2 (Version None)
Quarter: 2009Q1

REPORT INFORMATION
  Report Type: 
  Country: None (occurrence: None)
  Receive Date: 20090225
  Receipt Date: 20090209
  Transmission Date: 20090719
  Serious: Yes (Hospitalization)
  Sender: FDA-Public Use
  Company Number: 002#8#2008-00736

PATIENT
  Age: 62 Year
  Sex: Female

DRUGS (2)
  1. OMEPRAZOLE [Suspect]
     Indication: HIATUS HERNIA
     Dosage: (20 MG QD)
  2. ESOMEPRAZOLE (ESOMEPRAZOLE) (NOT SPECIFIED) [Suspect]
     Dosage: (40 MG QD)

REACTIONS (10)
  - BLOOD PHOSPHORUS INCREASED [None]
  - DYSPHAGIA [None]
  - GIARDIASIS [None]
  - HYPOCALCAEMIA [None]
  - HYPOCALCIURIA [None]
  - HYPOMAGNESAEMIA [None]
  - HYPOPARATHYROIDISM [None]
  - MALABSORPTION [None]
  - QUADRIPARESIS [None]
  - VOMITING [None]
